FAERS Safety Report 14844083 (Version 2)
Quarter: 2018Q3

REPORT INFORMATION
  Report Type: Spontaneous
  Country: BR (occurrence: BR)
  Receive Date: 20180503
  Receipt Date: 20180706
  Transmission Date: 20181010
  Serious: Yes (Death, Hospitalization, Other)
  Sender: FDA-Public Use
  Company Number: BR-CELGENEUS-BRA-20180500892

PATIENT
  Age: 74 Year
  Sex: Female

DRUGS (1)
  1. VIDAZA [Suspect]
     Active Substance: AZACITIDINE
     Indication: MYELODYSPLASTIC SYNDROME
     Route: 041

REACTIONS (6)
  - Renal failure [Unknown]
  - Myelodysplastic syndrome [Unknown]
  - Death [Fatal]
  - Influenza [Unknown]
  - Respiratory disorder [Unknown]
  - Infection [Unknown]

NARRATIVE: CASE EVENT DATE: 20180417
